FAERS Safety Report 14795113 (Version 1)
Quarter: 2018Q2

REPORT INFORMATION
  Report Type: Report from Study
  Country: PT (occurrence: PT)
  Receive Date: 20180423
  Receipt Date: 20180423
  Transmission Date: 20180711
  Serious: Yes (Hospitalization)
  Sender: FDA-Public Use
  Company Number: PT-TEVA-2018-PT-884768

PATIENT
  Age: 2 Decade
  Sex: Female

DRUGS (16)
  1. AZATHIOPRINE. [Suspect]
     Active Substance: AZATHIOPRINE
     Indication: LUPUS NEPHRITIS
     Route: 048
     Dates: end: 200602
  2. METHYLPREDNISOLONE. [Suspect]
     Active Substance: METHYLPREDNISOLONE
     Indication: LUPUS NEPHRITIS
     Dosage: 1G
     Route: 050
     Dates: start: 2004
  3. RITUXIMAB. [Suspect]
     Active Substance: RITUXIMAB
     Dosage: FOUR WEEKLY
     Route: 050
     Dates: start: 200804
  4. CYCLOPHOSPHAMIDE. [Suspect]
     Active Substance: CYCLOPHOSPHAMIDE
     Indication: LUPUS NEPHRITIS
     Dosage: 1 G/M2 MONTHLY
     Route: 050
     Dates: start: 2004
  5. IMMUNEGLOBULIN [Concomitant]
     Indication: LUPUS NEPHRITIS
     Dosage: 2 G/KG
     Route: 042
  6. CYCLOPHOSPHAMIDE. [Suspect]
     Active Substance: CYCLOPHOSPHAMIDE
     Dosage: 600 MG/M2; CUMULATIVE DOSAGE: 5.6 G/M2 (6 MONTHLY AND 4 TRIMONTHLY DOSES)
     Route: 050
  7. PREDNISOLONE. [Suspect]
     Active Substance: PREDNISOLONE
     Indication: LUPUS NEPHRITIS
     Dosage: 1.4 MG/KG/DAY
     Route: 048
     Dates: start: 2004
  8. HYDROCORTISONE. [Suspect]
     Active Substance: HYDROCORTISONE
     Indication: LUPUS NEPHRITIS
     Route: 065
     Dates: start: 200702
  9. MYCOPHENOLATE MOFETIL. [Suspect]
     Active Substance: MYCOPHENOLATE MOFETIL
     Indication: LUPUS NEPHRITIS
     Route: 065
     Dates: start: 2006
  10. METHYLPREDNISOLONE. [Suspect]
     Active Substance: METHYLPREDNISOLONE
     Dosage: THREE DOSES OF 1G
     Route: 050
  11. PREDNISOLONE. [Suspect]
     Active Substance: PREDNISOLONE
     Route: 048
     Dates: start: 2007
  12. PREDNISOLONE. [Suspect]
     Active Substance: PREDNISOLONE
     Route: 048
     Dates: start: 2006
  13. IMMUNEGLOBULIN [Concomitant]
     Dosage: 1.5 G/KG
     Route: 042
  14. ACETAMINOPHEN. [Concomitant]
     Active Substance: ACETAMINOPHEN
     Indication: LUPUS NEPHRITIS
     Route: 065
     Dates: start: 200702
  15. CYCLOPHOSPHAMIDE. [Suspect]
     Active Substance: CYCLOPHOSPHAMIDE
     Dosage: 0.5 G/M2; CUMULATIVE DOSE OF 6.1 G/M2
     Route: 050
     Dates: start: 2006
  16. RITUXIMAB. [Suspect]
     Active Substance: RITUXIMAB
     Indication: LUPUS NEPHRITIS
     Dosage: 375 MG/M2 FOUR WEEKLY; RE-INITIATED LATER
     Route: 050
     Dates: start: 200702

REACTIONS (6)
  - Rash [Unknown]
  - Upper respiratory tract infection [Unknown]
  - Peritonitis [Recovered/Resolved]
  - Nausea [Unknown]
  - Vomiting [Unknown]
  - Corynebacterium infection [Recovered/Resolved]

NARRATIVE: CASE EVENT DATE: 200602
